FAERS Safety Report 12464236 (Version 1)
Quarter: 2016Q2

REPORT INFORMATION
  Report Type: Spontaneous
  Country: US (occurrence: None)
  Receive Date: 20160613
  Receipt Date: 20160613
  Transmission Date: 20160815
  Serious: No
  Sender: FDA-Public Use
  Company Number: None

PATIENT
  Age: 27 Year
  Sex: Male

DRUGS (1)
  1. VIVITROL [Suspect]
     Active Substance: NALTREXONE
     Indication: DRUG ABUSE
     Dosage: 380MG EVERY 21 TO 28 DAYS IM
     Route: 030
     Dates: start: 20160126

REACTIONS (1)
  - Decreased appetite [None]

NARRATIVE: CASE EVENT DATE: 2016
